FAERS Safety Report 21778084 (Version 3)
Quarter: 2023Q1

REPORT INFORMATION
  Report Type: Spontaneous
  Country: DE (occurrence: DE)
  Receive Date: 20221226
  Receipt Date: 20230117
  Transmission Date: 20230418
  Serious: Yes (Other)
  Sender: FDA-Public Use
  Company Number: DE-GLAXOSMITHKLINE-DE2022EME191029

PATIENT

DRUGS (1)
  1. FLUTICASONE PROPIONATE\SALMETEROL XINAFOATE [Suspect]
     Active Substance: FLUTICASONE PROPIONATE\SALMETEROL XINAFOATE
     Indication: Asthma
     Dosage: 2 PUFF(S), QD  50 ?G/250 ?G 3X60 ED

REACTIONS (3)
  - Foreign body aspiration [Unknown]
  - Incorrect dose administered by device [Unknown]
  - Product complaint [Unknown]
